FAERS Safety Report 8582977 (Version 5)
Quarter: 2012Q4

REPORT INFORMATION
  Report Type: 
  Country: US (occurrence: US)
  Receive Date: 20120529
  Receipt Date: 20121001
  Transmission Date: 20130627
  Serious: Yes (Other)
  Sender: FDA-Public Use
  Company Number: US-JNJFOC-20120517259

PATIENT
  Age: 43 Year
  Sex: Male

DRUGS (9)
  1. ULTRAM [Suspect]
     Indication: ARTHRITIS
     Route: 048
  2. ULTRAM [Suspect]
     Indication: ARTHRITIS
     Dosage: 6 tablets a day (2 tablets three times a aday) started in 1994-95
     Route: 048
  3. ULTRAM [Suspect]
     Indication: CARPAL TUNNEL SYNDROME
     Route: 048
  4. ULTRAM [Suspect]
     Indication: CARPAL TUNNEL SYNDROME
     Dosage: 6 tablets a day (2 tablets three times a aday) started in 1994-95
     Route: 048
  5. ULTRAM [Suspect]
     Indication: DIABETIC NEUROPATHY
     Route: 048
  6. ULTRAM [Suspect]
     Indication: DIABETIC NEUROPATHY
     Dosage: 6 tablets a day (2 tablets three times a aday) started in 1994-95
     Route: 048
  7. ULTRAM [Suspect]
     Indication: HEADACHE
     Route: 048
  8. ULTRAM [Suspect]
     Indication: HEADACHE
     Dosage: 6 tablets a day (2 tablets three times a aday) started in 1994-95
     Route: 048
  9. INSULIN [Concomitant]
     Indication: DIABETES MELLITUS
     Dosage: 1994-95
     Route: 065

REACTIONS (10)
  - Bedridden [Unknown]
  - Suicidal ideation [Unknown]
  - Depression [Unknown]
  - Drug dependence [Unknown]
  - Withdrawal syndrome [Not Recovered/Not Resolved]
  - Aggression [Unknown]
  - Decreased appetite [Unknown]
  - Muscle spasms [Not Recovered/Not Resolved]
  - Drug screen false positive [Unknown]
  - Malaise [Unknown]
